FAERS Safety Report 4302059-9 (Version None)
Quarter: 2004Q1

REPORT INFORMATION
  Report Type: 
  Country: None (occurrence: None)
  Receive Date: 20040220
  Receipt Date: 20040211
  Transmission Date: 20041129
  Serious: No
  Sender: FDA-Public Use
  Company Number: 04H-167-0246969-00

PATIENT
  Age: 52 Year
  Sex: Female

DRUGS (5)
  1. SEVOFLURANE [Suspect]
     Indication: ANAESTHESIA
     Dosage: INHALATION
     Route: 055
  2. CARBAMAZEPINE [Concomitant]
  3. HORMONE REPLACEMENT THERAPY [Concomitant]
  4. NAPROXEN [Concomitant]
  5. FENTANYL [Concomitant]

REACTIONS (1)
  - GRAND MAL CONVULSION [None]
